FAERS Safety Report 23493987 (Version 7)
Quarter: 2025Q4

REPORT INFORMATION
  Report Type: Other
  Country: CA (occurrence: CA)
  Receive Date: 20240207
  Receipt Date: 20251020
  Transmission Date: 20260118
  Serious: Yes (Hospitalization, Other)
  Sender: GLENMARK
  Company Number: CA-GLENMARK PHARMACEUTICALS-2024GMK088762

PATIENT
  Age: 65 Year
  Sex: Female
  Weight: 69 kg

DRUGS (216)
  1. MUPIROCIN [Suspect]
     Active Substance: MUPIROCIN
     Indication: Product used for unknown indication
     Dosage: UNK, FORMULATION: OINTMENT
     Route: 061
  2. MUPIROCIN [Suspect]
     Active Substance: MUPIROCIN
     Dosage: UNK, FORMULATION: OINTMENT TOPICAL)
     Route: 065
  3. MUPIROCIN [Suspect]
     Active Substance: MUPIROCIN
     Dosage: UNK, FORMULATION: OINTMENT TOPICAL)
     Route: 061
  4. ACETAMINOPHEN [Suspect]
     Active Substance: ACETAMINOPHEN
     Indication: Product used for unknown indication
     Dosage: UNK
     Route: 065
  5. ACETAMINOPHEN\CODEINE PHOSPHATE [Suspect]
     Active Substance: ACETAMINOPHEN\CODEINE PHOSPHATE
     Indication: Product used for unknown indication
     Dosage: UNK, USP160 MG-8MG/5ML
     Route: 065
  6. ACETAMINOPHEN\PROPOXYPHENE HYDROCHLORIDE [Suspect]
     Active Substance: ACETAMINOPHEN\PROPOXYPHENE HYDROCHLORIDE
     Indication: Product used for unknown indication
     Dosage: UNK
     Route: 065
  7. ASPIRIN [Suspect]
     Active Substance: ASPIRIN
     Indication: Product used for unknown indication
     Dosage: UNK
     Route: 065
  8. ASPIRIN\CITRIC ACID MONOHYDRATE\SODIUM BICARBONATE [Suspect]
     Active Substance: ASPIRIN\CITRIC ACID MONOHYDRATE\SODIUM BICARBONATE
     Indication: Product used for unknown indication
     Dosage: UNK
     Route: 065
  9. ALIGN [Suspect]
     Active Substance: BIFIDOBACTERIUM LONGUM SUBSP. INFANTIS
     Indication: Product used for unknown indication
     Dosage: UNK
     Route: 065
  10. ALPRAZOLAM [Suspect]
     Active Substance: ALPRAZOLAM
     Indication: Product used for unknown indication
     Dosage: UNK
     Route: 065
  11. AMOXICILLIN [Suspect]
     Active Substance: AMOXICILLIN
     Indication: Product used for unknown indication
     Dosage: UNK
     Route: 065
  12. ATORVASTATIN CALCIUM [Suspect]
     Active Substance: ATORVASTATIN CALCIUM
     Indication: Product used for unknown indication
     Dosage: UNK
     Route: 065
  13. ATROPINE SULFATE\DIPHENOXYLATE HYDROCHLORIDE [Suspect]
     Active Substance: ATROPINE SULFATE\DIPHENOXYLATE HYDROCHLORIDE
     Indication: Product used for unknown indication
     Dosage: UNK
     Route: 065
  14. AZITHROMYCIN [Suspect]
     Active Substance: AZITHROMYCIN
     Indication: Product used for unknown indication
     Dosage: UNK
     Route: 065
  15. AZITHROMYCIN [Suspect]
     Active Substance: AZITHROMYCIN
     Dosage: UNK
     Route: 048
  16. BACTRIM [Suspect]
     Active Substance: SULFAMETHOXAZOLE\TRIMETHOPRIM
     Indication: Product used for unknown indication
     Dosage: UNK
     Route: 065
  17. BENZYDAMINE [Suspect]
     Active Substance: BENZYDAMINE
     Indication: Product used for unknown indication
     Dosage: UNK
     Route: 065
  18. BENZYDAMINE [Suspect]
     Active Substance: BENZYDAMINE
     Dosage: UNK (FORMULATION: SOLUTION BUCCAL)
     Route: 065
  19. BENZYDAMINE [Suspect]
     Active Substance: BENZYDAMINE
     Dosage: UNK
     Route: 048
  20. BETAMETHASONE VALERATE [Suspect]
     Active Substance: BETAMETHASONE VALERATE
     Indication: Product used for unknown indication
     Dosage: UNK
     Route: 065
  21. BETAMETHASONE VALERATE [Suspect]
     Active Substance: BETAMETHASONE VALERATE
     Indication: Product used for unknown indication
     Dosage: UNK
     Route: 065
  22. BETAMETHASONE VALERATE [Suspect]
     Active Substance: BETAMETHASONE VALERATE
     Dosage: UNK
     Route: 065
  23. BETAMETHASONE VALERATE [Suspect]
     Active Substance: BETAMETHASONE VALERATE
     Dosage: 0.122 GRAM
     Route: 065
  24. BIAXIN [Suspect]
     Active Substance: CLARITHROMYCIN
     Indication: Product used for unknown indication
     Dosage: UNK
     Route: 065
  25. BIAXIN [Suspect]
     Active Substance: CLARITHROMYCIN
     Indication: Product used for unknown indication
     Dosage: UNK
     Route: 065
  26. BIFIDOBACTERIUM LONGUM [Suspect]
     Active Substance: BIFIDOBACTERIUM LONGUM
     Indication: Product used for unknown indication
     Dosage: UNK
     Route: 065
  27. BISACODYL [Suspect]
     Active Substance: BISACODYL
     Indication: Product used for unknown indication
     Dosage: UNK
     Route: 065
  28. BUDESONIDE [Suspect]
     Active Substance: BUDESONIDE
     Indication: Product used for unknown indication
     Dosage: UNK
     Route: 065
  29. BUDESONIDE [Suspect]
     Active Substance: BUDESONIDE
     Dosage: UNK
     Route: 048
  30. CALCITRIOL\CALCIUM CARBONATE\ZINC [Suspect]
     Active Substance: CALCITRIOL\CALCIUM CARBONATE\ZINC
     Indication: Product used for unknown indication
     Dosage: UNK
     Route: 065
  31. CALCIUM CARBONATE [Suspect]
     Active Substance: CALCIUM CARBONATE
     Indication: Product used for unknown indication
     Dosage: UNK
     Route: 065
  32. CIPROFLOXACIN [Suspect]
     Active Substance: CIPROFLOXACIN
     Indication: Pyrexia
     Dosage: UNK
     Route: 042
  33. CIPROFLOXACIN [Suspect]
     Active Substance: CIPROFLOXACIN
     Indication: Pyrexia
     Dosage: UNK
     Route: 065
  34. CLOTRIMAZOLE [Suspect]
     Active Substance: CLOTRIMAZOLE
     Indication: Product used for unknown indication
     Dosage: UNK
     Route: 065
  35. CORTENEMA [Suspect]
     Active Substance: HYDROCORTISONE
     Indication: Product used for unknown indication
     Dosage: UNK (FORMULATION: ENEMA SUSPENSION)
     Route: 065
  36. CUPRIC OXIDE\FOLIC ACID\NIACIN\ZINC OXIDE [Suspect]
     Active Substance: CUPRIC OXIDE\FOLIC ACID\NIACIN\ZINC OXIDE
     Indication: Product used for unknown indication
     Dosage: UNK
     Route: 065
  37. DESONIDE [Suspect]
     Active Substance: DESONIDE
     Indication: Product used for unknown indication
     Dosage: UNK
     Route: 065
  38. PROPOXYPHENE HYDROCHLORIDE [Suspect]
     Active Substance: PROPOXYPHENE HYDROCHLORIDE
     Indication: Product used for unknown indication
     Dosage: UNK
     Route: 065
  39. DIFLUCAN [Suspect]
     Active Substance: FLUCONAZOLE
     Indication: Oral candidiasis
     Dosage: UNK
     Route: 048
  40. DILAUDID [Suspect]
     Active Substance: HYDROMORPHONE HYDROCHLORIDE
     Indication: Product used for unknown indication
     Dosage: 1 DOSAGE FORM
     Route: 065
  41. DILAUDID [Suspect]
     Active Substance: HYDROMORPHONE HYDROCHLORIDE
     Dosage: 1 DOSAGE FORM 2 EVERY 1 DAY
     Route: 065
  42. DIPHENHYDRAMINE [Suspect]
     Active Substance: DIPHENHYDRAMINE
     Indication: Product used for unknown indication
     Dosage: UNK
     Route: 065
  43. DIPHENHYDRAMINE [Suspect]
     Active Substance: DIPHENHYDRAMINE
     Dosage: 50 MILLIGRAM
     Route: 048
  44. ENTYVIO [Suspect]
     Active Substance: VEDOLIZUMAB
     Indication: Colitis ulcerative
     Dosage: 200 MILLIGRAM,3 EVERY 1 DAYS
     Route: 042
  45. ENTYVIO [Suspect]
     Active Substance: VEDOLIZUMAB
     Indication: Colitis ulcerative
     Dosage: 600 MILLIGRAM,3 EVERY 1 DAYS
     Route: 042
  46. ENTYVIO [Suspect]
     Active Substance: VEDOLIZUMAB
     Dosage: UNK
     Route: 042
  47. ENTYVIO [Suspect]
     Active Substance: VEDOLIZUMAB
     Indication: Colitis ulcerative
     Dosage: 200 MILLIGRAM, 3 EVERY 1 DAYS
     Route: 065
  48. ENTYVIO [Suspect]
     Active Substance: VEDOLIZUMAB
     Dosage: 200 MILLIGRAM, 3 EVERY 1 DAYS
     Route: 065
  49. ERGOCALCIFEROL [Suspect]
     Active Substance: ERGOCALCIFEROL
     Indication: Product used for unknown indication
     Dosage: UNK
     Route: 065
  50. ERTAPENEM SODIUM [Suspect]
     Active Substance: ERTAPENEM SODIUM
     Indication: Product used for unknown indication
     Dosage: UNK
     Route: 065
  51. ERTAPENEM SODIUM [Suspect]
     Active Substance: ERTAPENEM SODIUM
     Dosage: UNK (FORMULATION: POWDER FOR SOLUTION)
     Route: 065
  52. ERTAPENEM SODIUM [Suspect]
     Active Substance: ERTAPENEM SODIUM
     Dosage: UNK
     Route: 030
  53. ERTAPENEM SODIUM [Suspect]
     Active Substance: ERTAPENEM SODIUM
     Dosage: UNK (FORMULATION: POWDER AND SOLVENT FOR SOLUTION FOR INJECTION)
     Route: 065
  54. ERTAPENEM SODIUM [Suspect]
     Active Substance: ERTAPENEM SODIUM
     Indication: Product used for unknown indication
     Dosage: UNK (ROUTE INTRA-NASAL)
     Route: 045
  55. FENTANYL [Suspect]
     Active Substance: FENTANYL
     Indication: Colitis
     Dosage: UNK
     Route: 042
  56. FENTANYL [Suspect]
     Active Substance: FENTANYL
     Dosage: UNK
     Route: 042
  57. FLOVENT [Suspect]
     Active Substance: FLUTICASONE PROPIONATE
     Indication: Product used for unknown indication
     Dosage: UNK
     Route: 065
  58. FLUTICASONE [Suspect]
     Active Substance: FLUTICASONE
     Indication: Product used for unknown indication
     Dosage: UNK
     Route: 065
  59. FLUTICASONE PROPIONATE\SALMETEROL XINAFOATE [Suspect]
     Active Substance: FLUTICASONE PROPIONATE\SALMETEROL XINAFOATE
     Indication: Product used for unknown indication
     Dosage: UNK
     Route: 065
  60. FRUCTOSE [Suspect]
     Active Substance: FRUCTOSE
     Indication: Product used for unknown indication
     Dosage: UNK
     Route: 065
  61. GLYCERIN [Suspect]
     Active Substance: GLYCERIN
     Indication: Product used for unknown indication
     Dosage: UNK
     Route: 065
  62. NITROGLYCERIN [Suspect]
     Active Substance: NITROGLYCERIN
     Indication: Product used for unknown indication
     Dosage: UNK
     Route: 065
  63. HUMIRA [Suspect]
     Active Substance: ADALIMUMAB
     Indication: Product used for unknown indication
     Dosage: UNK
     Route: 058
  64. HYDROCHLOROTHIAZIDE [Suspect]
     Active Substance: HYDROCHLOROTHIAZIDE
     Indication: Product used for unknown indication
     Dosage: UNK
     Route: 065
  65. HYDROCHLOROTHIAZIDE [Suspect]
     Active Substance: HYDROCHLOROTHIAZIDE
     Dosage: 100 MILLIGRAM
     Route: 065
  66. HYDROCHLOROTHIAZIDE [Suspect]
     Active Substance: HYDROCHLOROTHIAZIDE
     Dosage: UNK
     Route: 058
  67. HYDROCORTISONE BUTYRATE [Suspect]
     Active Substance: HYDROCORTISONE BUTYRATE
     Indication: Product used for unknown indication
     Dosage: UNK
     Route: 065
  68. HYDROCORTISONE BUTYRATE [Suspect]
     Active Substance: HYDROCORTISONE BUTYRATE
     Dosage: UNK
     Route: 065
  69. HYDROMORPHONE HYDROCHLORIDE [Suspect]
     Active Substance: HYDROMORPHONE HYDROCHLORIDE
     Indication: Product used for unknown indication
     Dosage: UNK
     Route: 065
  70. GRAMICIDIN\NEOMYCIN\POLYMYXIN B SULFATE [Suspect]
     Active Substance: GRAMICIDIN\NEOMYCIN\POLYMYXIN B SULFATE
     Indication: Product used for unknown indication
     Dosage: UNK, OINTMENT DENTAL
     Route: 065
  71. STREPTOMYCIN SULFATE [Suspect]
     Active Substance: STREPTOMYCIN SULFATE
     Indication: Product used for unknown indication
     Dosage: UNK
     Route: 065
  72. CHOLECALCIFEROL [Suspect]
     Active Substance: CHOLECALCIFEROL
     Indication: Product used for unknown indication
     Dosage: UNK
     Route: 065
  73. LOPERAMIDE [Suspect]
     Active Substance: LOPERAMIDE
     Indication: Product used for unknown indication
     Dosage: UNK
     Route: 065
  74. POLYETHYLENE GLYCOL\POTASSIUM CHLORIDE\SODIUM BICARBONATE\SODIUM CHLOR [Suspect]
     Active Substance: POLYETHYLENE GLYCOL\POTASSIUM CHLORIDE\SODIUM BICARBONATE\SODIUM CHLORIDE
     Indication: Product used for unknown indication
     Dosage: UNK
     Route: 065
  75. MAGNESIUM [Suspect]
     Active Substance: MAGNESIUM
     Indication: Product used for unknown indication
     Dosage: UNK
     Route: 065
  76. MAGNESIUM CARBONATE [Suspect]
     Active Substance: MAGNESIUM CARBONATE
     Indication: Product used for unknown indication
     Dosage: UNK
     Route: 065
  77. MAGNESIUM HYDROXIDE [Suspect]
     Active Substance: MAGNESIUM HYDROXIDE
     Indication: Product used for unknown indication
     Dosage: UNK
     Route: 065
  78. MAGNESIUM OXIDE [Suspect]
     Active Substance: MAGNESIUM OXIDE
     Indication: Product used for unknown indication
     Dosage: UNK
     Route: 065
  79. MAGNESIUM SULFATE [Suspect]
     Active Substance: MAGNESIUM SULFATE
     Indication: Product used for unknown indication
     Dosage: UNK
     Route: 065
  80. MAGNESIUM SULFATE [Suspect]
     Active Substance: MAGNESIUM SULFATE
     Dosage: UNK
     Route: 030
  81. MESALAMINE [Suspect]
     Active Substance: MESALAMINE
     Indication: Proctitis
     Dosage: UNK
     Route: 065
  82. MESALAMINE [Suspect]
     Active Substance: MESALAMINE
     Indication: Colitis ulcerative
     Dosage: UNK,3 EVERY 1 DAYS
     Route: 065
  83. MESALAMINE [Suspect]
     Active Substance: MESALAMINE
     Indication: Colitis
     Dosage: UNK
     Route: 065
  84. MESALAMINE [Suspect]
     Active Substance: MESALAMINE
     Dosage: 1 DOSAGE FORM, 3 EVERY 1 DAYS
     Route: 065
  85. METHYLPREDNISOLONE SODIUM SUCCINATE [Suspect]
     Active Substance: METHYLPREDNISOLONE SODIUM SUCCINATE
     Indication: Product used for unknown indication
     Dosage: UNK
     Route: 042
  86. METRONIDAZOLE [Suspect]
     Active Substance: METRONIDAZOLE
     Indication: Product used for unknown indication
     Dosage: UNK
     Route: 065
  87. MIDAZOLAM [Suspect]
     Active Substance: MIDAZOLAM
     Indication: Product used for unknown indication
     Dosage: UNK
     Route: 065
  88. MIDAZOLAM HYDROCHLORIDE [Suspect]
     Active Substance: MIDAZOLAM HYDROCHLORIDE
     Indication: Seizure
     Dosage: 2 DOSAGE FORM
     Route: 065
  89. MIDAZOLAM HYDROCHLORIDE [Suspect]
     Active Substance: MIDAZOLAM HYDROCHLORIDE
     Dosage: UNK
     Route: 065
  90. MORPHINE [Suspect]
     Active Substance: MORPHINE
     Indication: Product used for unknown indication
     Dosage: UNK
     Route: 065
  91. NADOLOL [Suspect]
     Active Substance: NADOLOL
     Indication: Product used for unknown indication
     Dosage: UNK
     Route: 065
  92. NADOLOL [Suspect]
     Active Substance: NADOLOL
     Dosage: 40 MILLIGRAM
     Route: 065
  93. NICODERM CQ [Suspect]
     Active Substance: NICOTINE
     Indication: Product used for unknown indication
     Dosage: UNK
     Route: 065
  94. NICODERM CQ [Suspect]
     Active Substance: NICOTINE
     Dosage: UNK
     Route: 061
  95. NICOTINAMIDE [Suspect]
     Active Substance: NIACINAMIDE
     Indication: Product used for unknown indication
     Dosage: UNK
     Route: 065
  96. NICOTINE [Suspect]
     Active Substance: NICOTINE
     Indication: Product used for unknown indication
     Dosage: UNK
     Route: 065
  97. OXYBUTYNIN CHLORIDE [Suspect]
     Active Substance: OXYBUTYNIN CHLORIDE
     Indication: Product used for unknown indication
     Dosage: UNK
     Route: 065
  98. PANTOPRAZOLE [Suspect]
     Active Substance: PANTOPRAZOLE
     Indication: Product used for unknown indication
     Dosage: UNK
     Route: 065
  99. POTASSIUM CHLORIDE [Suspect]
     Active Substance: POTASSIUM CHLORIDE
     Indication: Product used for unknown indication
     Dosage: UNK
     Route: 065
  100. PREDNISONE [Suspect]
     Active Substance: PREDNISONE
     Indication: Product used for unknown indication
     Dosage: UNK
     Route: 065
  101. REFRESH TEARS [Suspect]
     Active Substance: CARBOXYMETHYLCELLULOSE SODIUM
     Indication: Product used for unknown indication
     Dosage: UNK, (FORMULATION: OPTHALMIC DROPS)
     Route: 047
  102. REMICADE [Suspect]
     Active Substance: INFLIXIMAB
     Indication: Colitis ulcerative
     Dosage: UNK (FORMULATION: POWDER FOR SOLUTION)
     Route: 042
  103. SIMVASTATIN [Suspect]
     Active Substance: SIMVASTATIN
     Indication: Product used for unknown indication
     Dosage: UNK
     Route: 065
  104. SODIUM BICARBONATE\SODIUM CHLORIDE [Suspect]
     Active Substance: SODIUM BICARBONATE\SODIUM CHLORIDE
     Indication: Product used for unknown indication
     Dosage: UNK
     Route: 045
  105. SODIUM BICARBONATE\SODIUM CHLORIDE [Suspect]
     Active Substance: SODIUM BICARBONATE\SODIUM CHLORIDE
     Dosage: UNK (FORMULATION: SOLUTION NASAL)
     Route: 045
  106. SODIUM BICARBONATE [Suspect]
     Active Substance: SODIUM BICARBONATE
     Indication: Product used for unknown indication
     Dosage: UNK
     Route: 065
  107. SUCRALFATE [Suspect]
     Active Substance: SUCRALFATE
     Indication: Product used for unknown indication
     Dosage: UNK
     Route: 065
  108. CARBOXYMETHYLCELLULOSE SODIUM [Suspect]
     Active Substance: CARBOXYMETHYLCELLULOSE SODIUM
     Indication: Product used for unknown indication
     Dosage: UNK
     Route: 065
  109. SUCRALFATE [Suspect]
     Active Substance: SUCRALFATE
     Indication: Product used for unknown indication
     Dosage: UNK
     Route: 065
  110. SULFAMETHOXAZOLE\TRIMETHOPRIM [Suspect]
     Active Substance: SULFAMETHOXAZOLE\TRIMETHOPRIM
     Indication: Product used for unknown indication
     Dosage: UNK
     Route: 065
  111. TRIAMCINOLONE ACETONIDE [Suspect]
     Active Substance: TRIAMCINOLONE ACETONIDE
     Indication: Product used for unknown indication
     Dosage: UNK
     Route: 014
  112. TRIAMCINOLONE ACETONIDE [Suspect]
     Active Substance: TRIAMCINOLONE ACETONIDE
     Dosage: UNK (SUSPENSION INTRA ARTICULAR )
     Route: 014
  113. UBIDECARENONE [Suspect]
     Active Substance: UBIDECARENONE
     Indication: Product used for unknown indication
     Dosage: UNK
     Route: 065
  114. VITAMIN D3 [Suspect]
     Active Substance: CHOLECALCIFEROL
     Indication: Product used for unknown indication
     Dosage: UNK
     Route: 065
  115. XANTOFYL PALMITATE [Suspect]
     Active Substance: XANTOFYL PALMITATE
     Indication: Product used for unknown indication
     Dosage: UNK
     Route: 065
  116. XANTOFYL PALMITATE [Suspect]
     Active Substance: XANTOFYL PALMITATE
     Dosage: UNK
     Route: 048
  117. ZEAXANTHIN [Suspect]
     Active Substance: ZEAXANTHIN
     Indication: Product used for unknown indication
     Dosage: UNK
     Route: 065
  118. ZINC OXIDE [Suspect]
     Active Substance: ZINC OXIDE
     Indication: Product used for unknown indication
     Dosage: UNK
     Route: 065
  119. ZOPICLONE [Suspect]
     Active Substance: ZOPICLONE
     Indication: Product used for unknown indication
     Dosage: UNK
     Route: 065
  120. CLARITHROMYCIN [Suspect]
     Active Substance: CLARITHROMYCIN
     Indication: Product used for unknown indication
     Dosage: UNK
     Route: 065
  121. BIFIDOBACTERIUM LONGUM [Suspect]
     Active Substance: BIFIDOBACTERIUM LONGUM
     Indication: Product used for unknown indication
     Route: 065
  122. CHOLECALCIFEROL [Suspect]
     Active Substance: CHOLECALCIFEROL
     Indication: Product used for unknown indication
     Dosage: UNK
     Route: 065
  123. CIPROFLOXACIN HYDROCHLORIDE [Suspect]
     Active Substance: CIPROFLOXACIN HYDROCHLORIDE
     Indication: Pyrexia
     Dosage: UNK
     Route: 065
  124. LOMOTIL [Suspect]
     Active Substance: ATROPINE SULFATE\DIPHENOXYLATE HYDROCHLORIDE
     Indication: Product used for unknown indication
     Dosage: UNK
     Route: 065
  125. LOMOTIL [Suspect]
     Active Substance: ATROPINE SULFATE\DIPHENOXYLATE HYDROCHLORIDE
     Dosage: UNK
     Route: 048
  126. PARA-AMINOSALICYLIC ACID [Suspect]
     Active Substance: AMINOSALICYLIC ACID
     Indication: Product used for unknown indication
     Dosage: UNK
     Route: 065
  127. VEDOLIZUMAB [Suspect]
     Active Substance: VEDOLIZUMAB
     Indication: Colitis ulcerative
     Dosage: 200 MILLIGRAM, 3 EVERY 1 DAYS (POWDER FOR SOLUTION INTRAVENOUS)
     Route: 042
  128. VEDOLIZUMAB [Suspect]
     Active Substance: VEDOLIZUMAB
     Dosage: 600 MILLIGRAM, 3 EVERY 1 DAYS (POWDER FOR SOLUTION INTRAVENOUS)
     Route: 042
  129. VEDOLIZUMAB [Suspect]
     Active Substance: VEDOLIZUMAB
     Dosage: 200 MILLIGRAM, 3 EVERY 1 DAYS (POWDER FOR SOLUTION INTRAVENOUS)
     Route: 042
  130. VEDOLIZUMAB [Suspect]
     Active Substance: VEDOLIZUMAB
     Dosage: 200 MILLIGRAM, 3 EVERY 1 DAYS (POWDER FOR SOLUTION INTRAVENOUS)
     Route: 065
  131. AMOXICILLIN TRIHYDRATE [Suspect]
     Active Substance: AMOXICILLIN
     Indication: Product used for unknown indication
     Dosage: UNK
     Route: 065
  132. AZITHROMYCIN DIHYDRATE [Suspect]
     Active Substance: AZITHROMYCIN DIHYDRATE
     Indication: Product used for unknown indication
     Dosage: UNK
     Route: 065
  133. MESALAMINE [Suspect]
     Active Substance: MESALAMINE
     Indication: Colitis ulcerative
     Dosage: UNK (TABLET (DELAYED AND EXTENDED RELEASE))
     Route: 065
  134. MESALAMINE [Suspect]
     Active Substance: MESALAMINE
     Indication: Colitis
     Dosage: UNK (TABLET (DELAYED AND EXTENDED RELEASE))
     Route: 065
  135. ACETAMINOPHEN\CODEINE PHOSPHATE [Suspect]
     Active Substance: ACETAMINOPHEN\CODEINE PHOSPHATE
     Indication: Product used for unknown indication
     Dosage: UNK
     Route: 065
  136. ALPRAZOLAM [Suspect]
     Active Substance: ALPRAZOLAM
     Indication: Product used for unknown indication
     Dosage: 0.25 MILLIGRAM
     Route: 065
  137. ACETAMINOPHEN\CODEINE PHOSPHATE [Suspect]
     Active Substance: ACETAMINOPHEN\CODEINE PHOSPHATE
     Indication: Product used for unknown indication
     Route: 065
  138. ATROPINE SULFATE\DIPHENOXYLATE HYDROCHLORIDE [Suspect]
     Active Substance: ATROPINE SULFATE\DIPHENOXYLATE HYDROCHLORIDE
     Indication: Product used for unknown indication
     Dosage: 1 DOSAGE FORM
     Route: 048
  139. ATROPINE SULFATE\DIPHENOXYLATE HYDROCHLORIDE [Suspect]
     Active Substance: ATROPINE SULFATE\DIPHENOXYLATE HYDROCHLORIDE
     Dosage: UNK
     Route: 048
  140. ATROPINE SULFATE\DIPHENOXYLATE HYDROCHLORIDE [Suspect]
     Active Substance: ATROPINE SULFATE\DIPHENOXYLATE HYDROCHLORIDE
     Dosage: 4 DOSAGE FORM, 1 EVERY 24 HOURS
     Route: 065
  141. ATROPINE SULFATE\DIPHENOXYLATE HYDROCHLORIDE [Suspect]
     Active Substance: ATROPINE SULFATE\DIPHENOXYLATE HYDROCHLORIDE
     Dosage: UNK (4 EVERY 1 DAYS)
     Route: 065
  142. ATROPINE SULFATE\DIPHENOXYLATE HYDROCHLORIDE [Suspect]
     Active Substance: ATROPINE SULFATE\DIPHENOXYLATE HYDROCHLORIDE
     Dosage: 4 DOSAGE FORM (1 EVERY 1 DAYS)
     Route: 048
  143. CALCIUM ASCORBATE [Suspect]
     Active Substance: CALCIUM ASCORBATE
     Indication: Product used for unknown indication
     Dosage: UNK
     Route: 065
  144. CETIRIZINE [Suspect]
     Active Substance: CETIRIZINE HYDROCHLORIDE
     Indication: Allergy prophylaxis
     Dosage: UNK
     Route: 065
  145. .ALPHA.-TOCOPHEROL, D- [Suspect]
     Active Substance: .ALPHA.-TOCOPHEROL, D-
     Indication: Product used for unknown indication
     Route: 065
  146. DEXPANTHENOL [Suspect]
     Active Substance: DEXPANTHENOL
     Indication: Product used for unknown indication
     Dosage: UNK
     Route: 065
  147. FLUCONAZOLE [Suspect]
     Active Substance: FLUCONAZOLE
     Indication: Product used for unknown indication
     Dosage: UNK
     Route: 065
  148. FOLIC ACID [Suspect]
     Active Substance: FOLIC ACID
     Indication: Product used for unknown indication
     Route: 065
  149. GLYCERIN [Suspect]
     Active Substance: GLYCERIN
     Indication: Product used for unknown indication
     Dosage: UNK
     Route: 048
  150. GUAIFENESIN [Suspect]
     Active Substance: GUAIFENESIN
     Indication: Product used for unknown indication
     Dosage: UNK
     Route: 065
  151. HABITROL [Suspect]
     Active Substance: NICOTINE
     Indication: Product used for unknown indication
     Dosage: UNK
     Route: 065
  152. HUMIRA [Suspect]
     Active Substance: ADALIMUMAB
     Indication: Crohn^s disease
     Dosage: UNK
     Route: 065
  153. HUMIRA [Suspect]
     Active Substance: ADALIMUMAB
     Dosage: UNK (FORMULATION: SOLUTION SUBCUTANEOUS)
     Route: 058
  154. HUMIRA [Suspect]
     Active Substance: ADALIMUMAB
     Dosage: UNK (FORMULATION: SOLUTION SUBCUTANEOUS)
     Route: 058
  155. HYDROCHLOROTHIAZIDE [Suspect]
     Active Substance: HYDROCHLOROTHIAZIDE
     Indication: Product used for unknown indication
     Dosage: UNK
     Route: 065
  156. HYDROCHLOROTHIAZIDE [Suspect]
     Active Substance: HYDROCHLOROTHIAZIDE
     Dosage: UNK
     Route: 005
  157. HYDROCHLOROTHIAZIDE [Suspect]
     Active Substance: HYDROCHLOROTHIAZIDE
     Dosage: UNK
     Route: 058
  158. LOPERAMIDE [Suspect]
     Active Substance: LOPERAMIDE
     Indication: Product used for unknown indication
     Dosage: UNK
     Route: 065
  159. LOPERAMIDE [Suspect]
     Active Substance: LOPERAMIDE
     Dosage: 1 DOSAGE FORM, 1 EVERY 24 HOURS
     Route: 048
  160. LOPERAMIDE [Suspect]
     Active Substance: LOPERAMIDE
     Dosage: 4 DOSAGE FORM, 1 EVERY 24 HOURS
     Route: 048
  161. LOPERAMIDE [Suspect]
     Active Substance: LOPERAMIDE
     Dosage: 4 DOSAGE FORM, 4 EVERY 1 DAYS
     Route: 048
  162. PREGABALIN [Suspect]
     Active Substance: PREGABALIN
     Indication: Product used for unknown indication
     Dosage: 150 MILLIGRAM
     Route: 065
  163. PREGABALIN [Suspect]
     Active Substance: PREGABALIN
     Indication: Product used for unknown indication
     Route: 065
  164. RIBOFLAVIN TETRANICOTINATE [Suspect]
     Active Substance: RIBOFLAVIN TETRANICOTINATE
     Indication: Product used for unknown indication
     Dosage: UNK
     Route: 065
  165. POLYETHYLENE GLYCOL\PROPYLENE GLYCOL\SODIUM CHLORIDE [Suspect]
     Active Substance: POLYETHYLENE GLYCOL\PROPYLENE GLYCOL\SODIUM CHLORIDE
     Indication: Product used for unknown indication
     Dosage: UNK (FORMULATION: SOLUTION NASAL) (ROUTE: INTRANASAL)
     Route: 045
  166. SODIUM BORATE [Suspect]
     Active Substance: SODIUM BORATE
     Indication: Product used for unknown indication
     Dosage: UNK
     Route: 048
  167. THIAMINE HYDROCHLORIDE [Suspect]
     Active Substance: THIAMINE HYDROCHLORIDE
     Indication: Product used for unknown indication
     Route: 065
  168. TRIAMCINOLONE ACETONIDE [Suspect]
     Active Substance: TRIAMCINOLONE ACETONIDE
     Indication: Product used for unknown indication
     Dosage: UNK
     Route: 065
  169. HYDROMORPHONE HYDROCHLORIDE [Suspect]
     Active Substance: HYDROMORPHONE HYDROCHLORIDE
     Indication: Product used for unknown indication
     Dosage: UNK
     Route: 065
  170. HYDROMORPHONE HYDROCHLORIDE [Suspect]
     Active Substance: HYDROMORPHONE HYDROCHLORIDE
     Dosage: UNK
     Route: 065
  171. LOPERAMIDE HYDROCHLORIDE [Suspect]
     Active Substance: LOPERAMIDE HYDROCHLORIDE
     Indication: Product used for unknown indication
     Dosage: UNK
     Route: 065
  172. CALCITRIOL [Suspect]
     Active Substance: CALCITRIOL
     Indication: Product used for unknown indication
     Dosage: UNK
     Route: 065
  173. GLYCERIN [Suspect]
     Active Substance: GLYCERIN
     Indication: Product used for unknown indication
     Dosage: UNK
     Route: 065
  174. HYDROCORTISONE [Suspect]
     Active Substance: HYDROCORTISONE
     Indication: Product used for unknown indication
     Dosage: UNK
     Route: 065
  175. TRIAMCINOLONE [Suspect]
     Active Substance: TRIAMCINOLONE
     Indication: Product used for unknown indication
     Dosage: UNK
     Route: 014
  176. HYDROMORPHONE [Suspect]
     Active Substance: HYDROMORPHONE
     Indication: Product used for unknown indication
     Dosage: UNK
     Route: 065
  177. SUCRALFATE [Suspect]
     Active Substance: SUCRALFATE
     Indication: Product used for unknown indication
     Dosage: UNK
     Route: 065
  178. OXYBUTYNIN [Suspect]
     Active Substance: OXYBUTYNIN
     Indication: Product used for unknown indication
     Dosage: UNK
     Route: 065
  179. METHYLPREDNISOLONE SODIUM SUCCINATE [Suspect]
     Active Substance: METHYLPREDNISOLONE SODIUM SUCCINATE
     Indication: Product used for unknown indication
     Dosage: UNK
     Route: 042
  180. PROBIOTICS NOS [Suspect]
     Active Substance: PROBIOTICS NOS
     Indication: Product used for unknown indication
     Dosage: UNK
     Route: 065
  181. ACETAMINOPHEN\CODEINE PHOSPHATE [Suspect]
     Active Substance: ACETAMINOPHEN\CODEINE PHOSPHATE
     Indication: Product used for unknown indication
     Dosage: UNK
     Route: 065
  182. ARNUITY ELLIPTA [Suspect]
     Active Substance: FLUTICASONE FUROATE
     Indication: Product used for unknown indication
     Dosage: UNK
     Route: 065
  183. TRIAMCINOLONE [Suspect]
     Active Substance: TRIAMCINOLONE
     Indication: Product used for unknown indication
     Dosage: UNK
     Route: 065
  184. FLUTICASONE FUROATE [Suspect]
     Active Substance: FLUTICASONE FUROATE
     Indication: Product used for unknown indication
     Dosage: UNK
     Route: 065
  185. BACTROBAN [Suspect]
     Active Substance: MUPIROCIN CALCIUM
     Indication: Product used for unknown indication
     Dosage: UNK
     Route: 061
  186. BETAMETHASONE DIPROPIONATE [Suspect]
     Active Substance: BETAMETHASONE DIPROPIONATE
     Indication: Product used for unknown indication
     Dosage: UNK
     Route: 065
  187. DIPHENHYDRAMINE HYDROCHLORIDE [Suspect]
     Active Substance: DIPHENHYDRAMINE HYDROCHLORIDE
     Indication: Nausea
     Dosage: UNK
     Route: 065
  188. DIPHENHYDRAMINE HYDROCHLORIDE [Suspect]
     Active Substance: DIPHENHYDRAMINE HYDROCHLORIDE
     Indication: Nausea
     Dosage: 50 MILLIGRAM
     Route: 048
  189. TRIAMCINOLONE ACETONIDE [Suspect]
     Active Substance: TRIAMCINOLONE ACETONIDE
     Indication: Product used for unknown indication
     Dosage: UNK
     Route: 065
  190. LOPERAMIDE HYDROCHLORIDE [Suspect]
     Active Substance: LOPERAMIDE HYDROCHLORIDE
     Indication: Product used for unknown indication
     Dosage: UNK
     Route: 065
  191. LOPERAMIDE HYDROCHLORIDE [Suspect]
     Active Substance: LOPERAMIDE HYDROCHLORIDE
     Indication: Product used for unknown indication
     Dosage: UNK
     Route: 048
  192. LOPERAMIDE HYDROCHLORIDE [Suspect]
     Active Substance: LOPERAMIDE HYDROCHLORIDE
     Dosage: UNK
     Route: 048
  193. LOPERAMIDE HYDROCHLORIDE [Suspect]
     Active Substance: LOPERAMIDE HYDROCHLORIDE
     Dosage: 1 DOSAGE FORM
     Route: 048
  194. LOPERAMIDE HYDROCHLORIDE [Suspect]
     Active Substance: LOPERAMIDE HYDROCHLORIDE
     Dosage: 4 DOSAGE FORM, 1 EVERY 1 DAY
     Route: 048
  195. METRONIDAZOLE [Suspect]
     Active Substance: METRONIDAZOLE
     Indication: Product used for unknown indication
     Dosage: 1 PERCENT
     Route: 065
  196. REFRESH TEARS [Suspect]
     Active Substance: CARBOXYMETHYLCELLULOSE SODIUM
     Indication: Product used for unknown indication
     Dosage: UNK
     Route: 065
  197. NITROGLYCERIN [Suspect]
     Active Substance: NITROGLYCERIN
     Indication: Product used for unknown indication
     Dosage: 0.1 MILLIGRAM
     Route: 048
  198. BISACODYL [Suspect]
     Active Substance: BISACODYL
     Indication: Product used for unknown indication
     Dosage: UNK
     Route: 064
  199. AZITHROMYCIN DIHYDRATE [Suspect]
     Active Substance: AZITHROMYCIN DIHYDRATE
     Indication: Product used for unknown indication
     Dosage: UNK
     Route: 048
  200. ACETAMINOPHEN [Suspect]
     Active Substance: ACETAMINOPHEN
     Indication: Product used for unknown indication
     Dosage: UNK
     Route: 065
  201. AZITHROMYCIN ANHYDROUS [Suspect]
     Active Substance: AZITHROMYCIN ANHYDROUS
     Indication: Product used for unknown indication
     Dosage: UNK
     Route: 065
  202. ADALIMUMAB [Suspect]
     Active Substance: ADALIMUMAB
     Indication: Crohn^s disease
     Dosage: UNK (FORMULATION: SOLUTION SUBCUTANEOUS)
     Route: 058
  203. ADALIMUMAB [Suspect]
     Active Substance: ADALIMUMAB
     Dosage: UNK (FORMULATION: SOLUTION SUBCUTANEOUS)
     Route: 058
  204. ASCORBIC ACID [Suspect]
     Active Substance: ASCORBIC ACID
     Indication: Product used for unknown indication
     Dosage: UNK
     Route: 065
  205. CITRIC ACID [Suspect]
     Active Substance: CITRIC ACID MONOHYDRATE
     Indication: Product used for unknown indication
     Dosage: UNK
     Route: 065
  206. CLOFIBRATE [Suspect]
     Active Substance: CLOFIBRATE
     Indication: Product used for unknown indication
     Dosage: UNK
     Route: 065
  207. FRAMYCETIN SULFATE [Suspect]
     Active Substance: FRAMYCETIN SULFATE
     Indication: Product used for unknown indication
     Dosage: UNK
     Route: 065
  208. GLYCERIN [Suspect]
     Active Substance: GLYCERIN
     Indication: Product used for unknown indication
     Dosage: UNK
     Route: 065
  209. NUCALA [Suspect]
     Active Substance: MEPOLIZUMAB
     Indication: Product used for unknown indication
     Dosage: UNK (FORMULATION: POWDER FOR SOLUTION SUBCUTANEOUS)
     Route: 065
  210. POLYETHYLENE GLYCOL [Suspect]
     Active Substance: POLYETHYLENE GLYCOL
     Indication: Product used for unknown indication
     Dosage: UNK
     Route: 065
  211. PROBIOTICS NOS [Suspect]
     Active Substance: PROBIOTICS NOS
     Indication: Product used for unknown indication
     Dosage: UNK
     Route: 065
  212. HERBALS [Suspect]
     Active Substance: HERBALS
     Indication: Product used for unknown indication
     Dosage: UNK (FORMULATION: SOLUTION INTRAMUSCULAR)
     Route: 065
  213. UNSPECIFIED INGREDIENT [Suspect]
     Active Substance: UNSPECIFIED INGREDIENT
     Indication: Product used for unknown indication
     Dosage: UNK (FORMULATION: LIQUID INTRAVENOUS)
     Route: 065
  214. VALSARTAN [Suspect]
     Active Substance: VALSARTAN
     Indication: Product used for unknown indication
     Dosage: UNK
     Route: 065
  215. INFLIXIMAB [Suspect]
     Active Substance: INFLIXIMAB
     Indication: Crohn^s disease
     Dosage: UNK
     Route: 042
  216. FENTANYL CITRATE [Suspect]
     Active Substance: FENTANYL CITRATE
     Indication: Product used for unknown indication
     Dosage: UNK
     Route: 065

REACTIONS (30)
  - Anaemia [Not Recovered/Not Resolved]
  - Chronic sinusitis [Not Recovered/Not Resolved]
  - Colitis [Not Recovered/Not Resolved]
  - Colitis ulcerative [Not Recovered/Not Resolved]
  - Constipation [Not Recovered/Not Resolved]
  - Female genital tract fistula [Not Recovered/Not Resolved]
  - Frequent bowel movements [Not Recovered/Not Resolved]
  - Dyspepsia [Not Recovered/Not Resolved]
  - Procedural pain [Not Recovered/Not Resolved]
  - Haematochezia [Not Recovered/Not Resolved]
  - Macular degeneration [Not Recovered/Not Resolved]
  - Malaise [Not Recovered/Not Resolved]
  - Oral candidiasis [Not Recovered/Not Resolved]
  - Paraesthesia oral [Not Recovered/Not Resolved]
  - Proctitis [Not Recovered/Not Resolved]
  - Pyrexia [Not Recovered/Not Resolved]
  - Radiculopathy [Not Recovered/Not Resolved]
  - Rectal haemorrhage [Not Recovered/Not Resolved]
  - Vaginal discharge [Not Recovered/Not Resolved]
  - Vaginal flatulence [Not Recovered/Not Resolved]
  - Weight decreased [Not Recovered/Not Resolved]
  - Abdominal pain [Not Recovered/Not Resolved]
  - Headache [Not Recovered/Not Resolved]
  - Infusion related reaction [Not Recovered/Not Resolved]
  - Erythema [Not Recovered/Not Resolved]
  - Pain [Not Recovered/Not Resolved]
  - Nausea [Not Recovered/Not Resolved]
  - Off label use [Unknown]
  - Therapeutic product effect incomplete [Unknown]
  - Drug ineffective [Unknown]
